FAERS Safety Report 16580434 (Version 2)
Quarter: 2020Q4

REPORT INFORMATION
  Report Type: Spontaneous
  Country: US (occurrence: US)
  Receive Date: 20190716
  Receipt Date: 20201027
  Transmission Date: 20210113
  Serious: No
  Sender: FDA-Public Use
  Company Number: US-JAZZ-2014-US-009954

PATIENT
  Sex: Male

DRUGS (3)
  1. XYREM [Suspect]
     Active Substance: SODIUM OXYBATE
     Indication: NARCOLEPSY
     Dosage: 2.25 G, BID
     Route: 048
     Dates: start: 201407
  2. VENLAFAXINE XR [Suspect]
     Active Substance: VENLAFAXINE HYDROCHLORIDE
     Indication: ANXIETY
     Dosage: 75 GRAM, QHS
     Route: 048
     Dates: start: 20200124
  3. XYREM [Suspect]
     Active Substance: SODIUM OXYBATE
     Indication: CATAPLEXY
     Dosage: 4.5 G, BID
     Route: 048

REACTIONS (2)
  - Anxiety [Unknown]
  - Depression [Unknown]

NARRATIVE: CASE EVENT DATE: 2014
